FAERS Safety Report 4703785-X (Version None)
Quarter: 2005Q2

REPORT INFORMATION
  Report Type: 
  Country: None (occurrence: None)
  Receive Date: 20050629
  Receipt Date: 20050629
  Transmission Date: 20051028
  Serious: Yes (Death)
  Sender: FDA-Public Use
  Company Number: None

PATIENT
  Sex: Female
  Weight: 4.959 kg

DRUGS (3)
  1. CYTARABINE [Suspect]
     Dosage: 64 MG/KG  DAILY   INTRAVENOU
     Route: 042
     Dates: start: 20050614, end: 20050618
  2. FLUDARABINE [Suspect]
     Dosage: 1 MG/KG  DAILY  INTRAVENOU
     Route: 042
     Dates: start: 20050614, end: 20050618
  3. CIS-RETINOIC ACID [Concomitant]

REACTIONS (15)
  - CAPILLARY DISORDER [None]
  - CARDIAC FAILURE [None]
  - CARDIAC FAILURE CONGESTIVE [None]
  - CONTUSION [None]
  - GENERALISED OEDEMA [None]
  - HYPOALBUMINAEMIA [None]
  - HYPOKALAEMIA [None]
  - OBSTRUCTION [None]
  - PANCYTOPENIA [None]
  - PULMONARY OEDEMA [None]
  - RASH [None]
  - RESPIRATORY FAILURE [None]
  - SEPSIS [None]
  - URINE OUTPUT DECREASED [None]
  - WEIGHT INCREASED [None]
